FAERS Safety Report 4351621-6 (Version None)
Quarter: 2004Q2

REPORT INFORMATION
  Report Type: 
  Country: None (occurrence: None)
  Receive Date: 20040503
  Receipt Date: 20040423
  Transmission Date: 20050107
  Serious: Yes (Hospitalization)
  Sender: FDA-Public Use
  Company Number: 200411686FR

PATIENT
  Age: 38 Year
  Sex: Male
  Weight: 72 kg

DRUGS (8)
  1. FLAGYL [Suspect]
     Route: 048
     Dates: start: 20030306, end: 20040401
  2. BACTRIM [Suspect]
     Route: 048
     Dates: start: 20040323, end: 20040331
  3. CLAMOXYL [Suspect]
     Route: 048
     Dates: start: 20040329, end: 20040401
  4. THYMOGLOBULIN [Suspect]
     Dates: start: 20040320, end: 20040401
  5. CELLCEPT [Concomitant]
  6. ZIRTEC [Concomitant]
     Route: 048
     Dates: start: 20040331, end: 20040404
  7. CORTICOSTEROIDS [Concomitant]
     Route: 042
  8. NEORAL [Concomitant]

REACTIONS (8)
  - APHASIA [None]
  - DRUG HYPERSENSITIVITY [None]
  - EAR PAIN [None]
  - HEMIPLEGIA [None]
  - NECK PAIN [None]
  - RASH ERYTHEMATOUS [None]
  - RASH PRURITIC [None]
  - SERUM SICKNESS [None]
